APPROVED DRUG PRODUCT: ESTRADIOL
Active Ingredient: ESTRADIOL
Strength: 0.5MG
Dosage Form/Route: TABLET;ORAL
Application: A040297 | Product #001
Applicant: USL PHARMA INC
Approved: Apr 17, 2002 | RLD: No | RS: No | Type: DISCN